FAERS Safety Report 8068059-0 (Version None)
Quarter: 2012Q1

REPORT INFORMATION
  Report Type: 
  Country: None (occurrence: None)
  Receive Date: 20120124
  Receipt Date: 20110916
  Transmission Date: 20120608
  Serious: No
  Sender: FDA-Public Use
  Company Number: US-AMGEN-USASP2011047979

PATIENT
  Sex: Female

DRUGS (16)
  1. XGEVA [Suspect]
     Indication: METASTASES TO BONE
     Dates: start: 20110826
  2. PRISTIQ [Concomitant]
  3. TRAZODONE HCL [Concomitant]
  4. LORTAB [Concomitant]
  5. NATURAL SUBSTANCE (NS) - SMOOTH MOVE TEA [Concomitant]
  6. BUPRENORPHINE [Concomitant]
  7. NS - THORNE MERIVA [Concomitant]
  8. GRANISETRON [Concomitant]
  9. NS - THORNE FERRISORBE [Concomitant]
  10. NS - D 2000 IU [Concomitant]
  11. DEPLIN [Concomitant]
  12. SINGULAIR [Concomitant]
  13. PROCHLORPERAZINE [Concomitant]
  14. NS - THORNE CUSARA [Concomitant]
  15. NATURAL SUBSTANCE (NS) - BASIC NUTRIENT 5 [Concomitant]
  16. TAMOXIFEN CITRATE [Concomitant]

REACTIONS (1)
  - TOOTHACHE [None]
